FAERS Safety Report 6856827-X (Version None)
Quarter: 2010Q3

REPORT INFORMATION
  Report Type: 
  Country: None (occurrence: None)
  Receive Date: 20100719
  Receipt Date: 20100715
  Transmission Date: 20110219
  Serious: Yes (Death, Hospitalization)
  Sender: FDA-Public Use
  Company Number: DE-BRISTOL-MYERS SQUIBB COMPANY-15175656

PATIENT
  Age: 62 Year
  Sex: Male
  Weight: 64 kg

DRUGS (7)
  1. CISPLATIN [Suspect]
     Indication: NON-SMALL CELL LUNG CANCER
     Dosage: SECOND AND RECENT INFUSION ON 14JUN10.
     Route: 042
     Dates: start: 20100521, end: 20100614
  2. PEMETREXED DISODIUM [Suspect]
     Indication: NON-SMALL CELL LUNG CANCER
     Dosage: 2ND AND RECENT INFUSION ON 14JUN10.
     Route: 042
     Dates: start: 20100521, end: 20100614
  3. VOLTAREN [Concomitant]
     Indication: PAIN
     Route: 065
  4. DECORTIN [Concomitant]
     Indication: PROPHYLAXIS
     Route: 065
     Dates: start: 20100424
  5. ACETYLCYSTEINE [Concomitant]
     Indication: COUGH
     Dosage: 1 DF=600 UNIT NOT SPECIFIED
     Route: 065
  6. NEXIUM [Concomitant]
     Indication: PROPHYLAXIS
     Route: 065
     Dates: start: 20100421
  7. FOLSAN [Concomitant]
     Indication: INFECTION
     Route: 065
     Dates: start: 20100520

REACTIONS (3)
  - INTESTINAL GANGRENE [None]
  - INTRA-ABDOMINAL HAEMORRHAGE [None]
  - SPLENIC INFARCTION [None]
